FAERS Safety Report 18430088 (Version 3)
Quarter: 2020Q4

REPORT INFORMATION
  Report Type: Spontaneous
  Country: PT (occurrence: PT)
  Receive Date: 20201027
  Receipt Date: 20201121
  Transmission Date: 20210114
  Serious: Yes (Hospitalization, Other)
  Sender: FDA-Public Use
  Company Number: PT-AUROBINDO-AUR-APL-2020-053673

PATIENT
  Age: 45 Year
  Sex: Female

DRUGS (2)
  1. BUPROPION. [Suspect]
     Active Substance: BUPROPION
     Indication: PERSONALITY DISORDER
     Dosage: UNK CHRONICALLY MEDICATED
     Route: 065
  2. RISPERIDONE. [Suspect]
     Active Substance: RISPERIDONE
     Indication: PERSONALITY DISORDER
     Dosage: CHRONICALLY MEDICATED
     Route: 065

REACTIONS (5)
  - Off label use [Unknown]
  - Urinary retention [Unknown]
  - Hypotonic urinary bladder [Unknown]
  - Bladder dilatation [Unknown]
  - Hydronephrosis [Unknown]
